FAERS Safety Report 8472943-3 (Version None)
Quarter: 2012Q2

REPORT INFORMATION
  Report Type: 
  Country: None (occurrence: None)
  Receive Date: 20120627
  Receipt Date: 20120620
  Transmission Date: 20120825
  Serious: Yes (Death)
  Sender: FDA-Public Use
  Company Number: US-CELGENEUS-163-21880-12063358

PATIENT
  Sex: Male

DRUGS (11)
  1. LANTUS [Concomitant]
     Route: 048
  2. FOSAMAX [Concomitant]
     Dosage: 70 MILLIGRAM
     Route: 048
  3. REVLIMID [Suspect]
     Indication: MULTIPLE MYELOMA
     Dosage: 5 MILLIGRAM
     Route: 048
     Dates: start: 20080129, end: 20080207
  4. ATIVAN [Concomitant]
     Indication: NAUSEA
     Dosage: 1 MILLIGRAM
     Route: 048
  5. HYDROCODONE BITARTRATE AND ACETAMINOPHEN [Concomitant]
     Route: 048
  6. ACTOS [Concomitant]
     Dosage: 15 MILLIGRAM
     Route: 048
  7. ALLOPURINOL [Concomitant]
     Dosage: 300 MILLIGRAM
     Route: 048
  8. LIPITOR [Concomitant]
     Dosage: 10 MILLIGRAM
     Route: 048
  9. METOPROLOL TARTRATE [Concomitant]
     Dosage: 50 MILLIGRAM
     Route: 048
  10. NEPHROCAPS [Concomitant]
     Route: 048
  11. PROTONIX [Concomitant]
     Dosage: 80 MILLIGRAM
     Route: 048

REACTIONS (1)
  - DEATH [None]
